FAERS Safety Report 24085838 (Version 1)
Quarter: 2024Q3

REPORT INFORMATION
  Report Type: Spontaneous
  Country: FR (occurrence: None)
  Receive Date: 20240712
  Receipt Date: 20240712
  Transmission Date: 20241017
  Serious: Yes (Other)
  Sender: ASTRAZENECA
  Company Number: 2024A159459

PATIENT
  Age: 79 Year
  Sex: Female
  Weight: 59 kg

DRUGS (1)
  1. DURVALUMAB [Suspect]
     Active Substance: DURVALUMAB
     Indication: Small cell lung cancer
     Dosage: 10 MG/KG Q2W
     Dates: start: 20200224, end: 20200312

REACTIONS (6)
  - Malignant neoplasm progression [Unknown]
  - Eastern Cooperative Oncology Group performance status worsened [Unknown]
  - Asthenia [Unknown]
  - Dysphagia [Unknown]
  - Nausea [Unknown]
  - Vomiting [Unknown]
